FAERS Safety Report 15905069 (Version 1)
Quarter: 2019Q1

REPORT INFORMATION
  Report Type: Report from Study
  Country: FR (occurrence: FR)
  Receive Date: 20190204
  Receipt Date: 20190204
  Transmission Date: 20190417
  Serious: Yes (Other)
  Sender: FDA-Public Use
  Company Number: FR-ROCHE-2259490

PATIENT
  Age: 32 Year
  Sex: Female
  Weight: 60 kg

DRUGS (4)
  1. PREDNISOLONE. [Concomitant]
     Active Substance: PREDNISOLONE
     Dosage: 15 MG/J
     Route: 065
     Dates: start: 201107
  2. PLAQUENIL [Concomitant]
     Active Substance: HYDROXYCHLOROQUINE SULFATE
     Dosage: 400 MG/J
     Route: 065
     Dates: start: 201108
  3. RITUXIMAB. [Suspect]
     Active Substance: RITUXIMAB
     Indication: IMMUNE THROMBOCYTOPENIC PURPURA
     Dosage: 4 WEEKLY INFUSION
     Route: 042
     Dates: start: 20120320, end: 20120320
  4. IMUREL [Concomitant]
     Active Substance: AZATHIOPRINE SODIUM
     Dosage: 100 MG/J
     Route: 065
     Dates: start: 201111

REACTIONS (6)
  - Laryngeal discomfort [Recovered/Resolved]
  - Off label use [Unknown]
  - Infusion related reaction [Recovered/Resolved]
  - Laryngeal dyspnoea [Recovered/Resolved]
  - Rash [Recovered/Resolved]
  - Intentional product use issue [Unknown]

NARRATIVE: CASE EVENT DATE: 20120320
